FAERS Safety Report 5535935-X (Version None)
Quarter: 2007Q4

REPORT INFORMATION
  Report Type: 
  Country: None (occurrence: None)
  Receive Date: 20071206
  Receipt Date: 20070830
  Transmission Date: 20080405
  Serious: Yes (Hospitalization)
  Sender: FDA-Public Use
  Company Number: US-AMGEN-01070553

PATIENT
  Sex: Female
  Weight: 77.2 kg

DRUGS (6)
  1. ENBREL [Suspect]
     Indication: RHEUMATOID ARTHRITIS
     Route: 058
     Dates: start: 20010515, end: 20070701
  2. ENBREL [Suspect]
  3. METHOTREXATE [Concomitant]
     Dates: start: 20000201, end: 20010801
  4. VOLTAREN [Concomitant]
     Dates: start: 19910301
  5. FOLIC ACID [Concomitant]
  6. DICLOFENAC [Concomitant]

REACTIONS (4)
  - BREAST CANCER RECURRENT [None]
  - DENTAL CARIES [None]
  - LUNG NEOPLASM [None]
  - TOOTH INFECTION [None]
